FAERS Safety Report 8888121 (Version 1)
Quarter: 2012Q4

REPORT INFORMATION
  Report Type: Report from Study
  Country: JP (occurrence: JP)
  Receive Date: 20121106
  Receipt Date: 20121106
  Transmission Date: 20130627
  Serious: Yes (Hospitalization, Other)
  Sender: FDA-Public Use
  Company Number: JP-PFIZER INC-2012273267

PATIENT
  Age: 73 Year
  Sex: Female

DRUGS (10)
  1. MEDROL [Suspect]
     Indication: RA
     Dosage: 8 mg, 1x/day
     Route: 048
     Dates: start: 20090313
  2. TOCILIZUMAB [Suspect]
     Indication: RA
     Dosage: 400 mg, 1 in 4 weeks
     Route: 041
     Dates: start: 20090313
  3. METOLATE [Suspect]
     Indication: RA
     Dosage: 6 mg, Monday and tuesday a week
     Route: 048
     Dates: start: 20090313
  4. MOHRUS [Concomitant]
     Indication: RA
     Dosage: 120 mg, 1x/day
     Route: 061
  5. LOXONIN [Concomitant]
     Indication: RA
     Dosage: 120 mg, 1x/day
     Route: 048
  6. SELBEX [Concomitant]
     Indication: GASTRITIS PROPHYLAXIS
     Dosage: 100 mg, 1x/day
     Route: 048
  7. FOLIAMIN [Concomitant]
     Indication: PROPHYLAXIS
     Dosage: 5 mg, weekly
     Route: 048
  8. VOLTAREN [Concomitant]
     Indication: RA
     Dosage: 25 mg, 1x/day
     Route: 054
  9. MYSLEE [Concomitant]
     Indication: INSOMNIA
     Dosage: 5 mg, 1x/day
     Route: 048
     Dates: start: 20090925
  10. EVISTA [Concomitant]
     Dosage: 60 mg, 1x/day
     Route: 048
     Dates: start: 20100219

REACTIONS (2)
  - Purulence [Recovered/Resolved]
  - Fibroma [Unknown]
